FAERS Safety Report 9285871 (Version 1)
Quarter: 2013Q2

REPORT INFORMATION
  Report Type: Spontaneous
  Country: US (occurrence: US)
  Receive Date: 20130513
  Receipt Date: 20130513
  Transmission Date: 20140414
  Serious: Yes (Other)
  Sender: FDA-Public Use
  Company Number: US-B.I. PHARMACEUTICALS,INC./RIDGEFIELD-2013-BI-12220BP

PATIENT
  Age: 52 Year
  Sex: Female
  Weight: 68 kg

DRUGS (7)
  1. MIRAPEX [Suspect]
  2. NEURONTIN [Suspect]
     Indication: NEURALGIA
     Dosage: 400 MG
     Route: 048
  3. ELAVIL [Suspect]
  4. SEROQUEL [Suspect]
  5. CYMBALTA [Suspect]
  6. REQUIP [Suspect]
  7. TAMOXIFEN [Suspect]
     Indication: BREAST CANCER

REACTIONS (6)
  - Breast cancer [Unknown]
  - Feeling abnormal [Unknown]
  - Tic [Unknown]
  - Feeling abnormal [Unknown]
  - Weight increased [Unknown]
  - Drug ineffective [Unknown]
